FAERS Safety Report 17648274 (Version 1)
Quarter: 2020Q2

REPORT INFORMATION
  Report Type: Report from Study
  Country: US (occurrence: US)
  Receive Date: 20200408
  Receipt Date: 20200408
  Transmission Date: 20200713
  Serious: Yes (Hospitalization)
  Sender: FDA-Public Use
  Company Number: US-JNJFOC-NSADSS2002025986

PATIENT
  Age: 71 Year
  Sex: Female
  Weight: 65.38 kg

DRUGS (19)
  1. MIRALOX [Concomitant]
     Indication: UNEVALUABLE EVENT
     Route: 048
     Dates: start: 20011127
  2. PREDNISONE. [Concomitant]
     Active Substance: PREDNISONE
     Indication: COLITIS
     Route: 048
     Dates: start: 20020514
  3. EPOGEN [Concomitant]
     Active Substance: ERYTHROPOIETIN
     Indication: ANAEMIA
     Dates: start: 20010920, end: 20020703
  4. EPOGEN [Concomitant]
     Active Substance: ERYTHROPOIETIN
     Dates: start: 20020703
  5. CENTRUM [Concomitant]
     Active Substance: VITAMINS
     Indication: PROPHYLAXIS
     Route: 048
  6. CISAPRIDE [Suspect]
     Active Substance: CISAPRIDE
     Indication: OBSTRUCTION
     Route: 048
     Dates: start: 20010416
  7. PRILOSEC [Concomitant]
     Active Substance: OMEPRAZOLE MAGNESIUM
     Indication: GASTROOESOPHAGEAL REFLUX DISEASE
     Route: 048
  8. OCTREOTIDE. [Concomitant]
     Active Substance: OCTREOTIDE
     Indication: OBSTRUCTION
     Route: 048
     Dates: start: 20011024, end: 20020122
  9. ASPIRIN. [Concomitant]
     Active Substance: ASPIRIN
     Indication: PROPHYLAXIS
     Route: 048
  10. DOXYCYCLINE. [Concomitant]
     Active Substance: DOXYCYCLINE
     Indication: OVERGROWTH BACTERIAL
     Route: 048
  11. CELEXA [Concomitant]
     Active Substance: CITALOPRAM HYDROBROMIDE
     Route: 048
     Dates: start: 20020626
  12. ALLEGRA [Concomitant]
     Active Substance: FEXOFENADINE HYDROCHLORIDE
     Indication: SINUS DISORDER
     Route: 048
  13. PREMARIN [Concomitant]
     Active Substance: ESTROGENS, CONJUGATED
     Indication: POSTMENOPAUSE
     Route: 048
  14. FLAGYL [Concomitant]
     Active Substance: METRONIDAZOLE\METRONIDAZOLE HYDROCHLORIDE
     Indication: OVERGROWTH BACTERIAL
     Route: 048
     Dates: start: 20011029, end: 20020228
  15. BACTRIM [Concomitant]
     Active Substance: SULFAMETHOXAZOLE\TRIMETHOPRIM
     Indication: OVERGROWTH BACTERIAL
     Route: 048
     Dates: start: 20011029
  16. GLUCOTROL [Concomitant]
     Active Substance: GLIPIZIDE
     Indication: DIABETES MELLITUS
     Route: 048
  17. LISINOPRIL. [Concomitant]
     Active Substance: LISINOPRIL
     Indication: HYPERTENSION
     Route: 048
  18. FOLIC ACID. [Concomitant]
     Active Substance: FOLIC ACID
     Indication: ANAEMIA
     Route: 048
  19. AMIODARONE [Concomitant]
     Active Substance: AMIODARONE
     Indication: ATRIAL FIBRILLATION
     Route: 048
     Dates: start: 20020319, end: 20020606

REACTIONS (2)
  - Atrial fibrillation [Recovering/Resolving]
  - Cardiac failure congestive [Recovered/Resolved]

NARRATIVE: CASE EVENT DATE: 20020419
